FAERS Safety Report 5401244-2 (Version None)
Quarter: 2007Q3

REPORT INFORMATION
  Report Type: 
  Country: None (occurrence: None)
  Receive Date: 20070731
  Receipt Date: 20070716
  Transmission Date: 20080115
  Serious: Yes (Life-Threatening, Hospitalization, Disabling)
  Sender: FDA-Public Use
  Company Number: DE-AVENTIS-200214542DE

PATIENT
  Sex: Male
  Weight: 90 kg

DRUGS (5)
  1. RILUZOLE [Suspect]
     Indication: MULTIPLE SYSTEM ATROPHY
     Route: 048
     Dates: start: 20010613
  2. RILUZOLE [Suspect]
     Route: 048
     Dates: start: 20010817
  3. DRIDASE [Concomitant]
     Dosage: DOSE QUANTITY: 0.5
     Route: 048
  4. ASTONIN H [Concomitant]
     Dosage: DOSE QUANTITY: 5
     Route: 048
  5. CARNIGEN FORTE [Concomitant]
     Indication: HYPERTENSION
     Dosage: DOSE QUANTITY: 2
     Route: 048

REACTIONS (4)
  - CARDIOVASCULAR DISORDER [None]
  - PNEUMONIA [None]
  - PULMONARY OEDEMA [None]
  - RESPIRATORY FAILURE [None]
